FAERS Safety Report 16654430 (Version 2)
Quarter: 2019Q3

REPORT INFORMATION
  Report Type: Spontaneous
  Country: US (occurrence: US)
  Receive Date: 20190731
  Receipt Date: 20190816
  Transmission Date: 20191004
  Serious: No
  Sender: FDA-Public Use
  Company Number: US-ACTELION-A-NJ2019-193585

PATIENT
  Sex: Female

DRUGS (1)
  1. UPTRAVI [Suspect]
     Active Substance: SELEXIPAG
     Indication: PRODUCT USED FOR UNKNOWN INDICATION
     Dosage: UNK
     Route: 048
     Dates: start: 20190717

REACTIONS (7)
  - Dyspnoea [Unknown]
  - Pain in jaw [Unknown]
  - Headache [Unknown]
  - Fatigue [Unknown]
  - Malaise [Unknown]
  - Nausea [Unknown]
  - Anxiety [Unknown]

NARRATIVE: CASE EVENT DATE: 201907
